FAERS Safety Report 11393934 (Version 1)
Quarter: 2015Q3

REPORT INFORMATION
  Report Type: Spontaneous
  Country: US (occurrence: None)
  Receive Date: 20150817
  Receipt Date: 20150817
  Transmission Date: 20151125
  Serious: Yes (Death, Hospitalization)
  Sender: FDA-Public Use
  Company Number: CPI 7016

PATIENT
  Age: 32 Year
  Sex: Male

DRUGS (4)
  1. N-ACETYLCYSTEINE [Suspect]
     Active Substance: ACETYLCYSTEINE
  2. INTRAVENOUS STEROIDS [Concomitant]
  3. INTRAVENOUS ANTIBIOTICS [Concomitant]
  4. BRONCHODILATOR [Concomitant]
     Active Substance: UNSPECIFIED INGREDIENT

REACTIONS (7)
  - Interstitial lung disease [None]
  - Pneumomediastinum [None]
  - No therapeutic response [None]
  - Cardio-respiratory arrest [None]
  - Subcutaneous emphysema [None]
  - Pneumothorax [None]
  - Tracheal injury [None]

NARRATIVE: CASE EVENT DATE: 20140101
